FAERS Safety Report 8841613 (Version 2)
Quarter: 2013Q2

REPORT INFORMATION
  Report Type: Report from Study
  Country: DE (occurrence: DE)
  Receive Date: 20121015
  Receipt Date: 20130415
  Transmission Date: 20140414
  Serious: Yes (Hospitalization)
  Sender: FDA-Public Use
  Company Number: DE-PFIZER INC-2012251594

PATIENT
  Age: 54 Year
  Sex: Female
  Weight: 79 kg

DRUGS (7)
  1. SOMATROPIN [Suspect]
     Indication: GROWTH HORMONE DEFICIENCY
     Dosage: 0.2 MG, 1X/DAY, 7 INJECTIONS/WEEK
     Route: 058
     Dates: start: 20060727
  2. LEVOTHYROXINE [Concomitant]
     Indication: GOITRE
     Dosage: UNK
     Dates: start: 19840723
  3. MERIMONO [Concomitant]
     Indication: BLOOD LUTEINISING HORMONE DECREASED
     Dosage: UNK
     Dates: start: 19990715
  4. MERIMONO [Concomitant]
     Indication: BLOOD FOLLICLE STIMULATING HORMONE DECREASED
  5. MERIMONO [Concomitant]
     Indication: HYPOGONADISM FEMALE
  6. DHEA [Concomitant]
     Indication: BLOOD CORTICOTROPHIN DECREASED
     Dosage: UNK
     Dates: start: 20010222
  7. HYDROCORTISONE [Concomitant]
     Indication: BLOOD CORTICOTROPHIN DECREASED
     Dosage: UNK
     Dates: start: 20071116

REACTIONS (1)
  - Upper limb fracture [Unknown]
